FAERS Safety Report 11583355 (Version 1)
Quarter: 2015Q3

REPORT INFORMATION
  Report Type: Spontaneous
  Country: US (occurrence: None)
  Receive Date: 20150930
  Receipt Date: 20150930
  Transmission Date: 20151125
  Serious: Yes (Hospitalization)
  Sender: FDA-Public Use
  Company Number: None

PATIENT
  Age: 55 Year
  Sex: Female
  Weight: 82.1 kg

DRUGS (9)
  1. EFFIENT [Concomitant]
     Active Substance: PRASUGREL HYDROCHLORIDE
  2. ALPRAZOLAM .25 MG SANDOZ [Concomitant]
     Active Substance: ALPRAZOLAM
  3. ECOTRIN 150 MG [Concomitant]
  4. BELVIQ [Suspect]
     Active Substance: LORCASERIN HYDROCHLORIDE
     Indication: WEIGHT DECREASED
     Dosage: 1 TWICE A DAY
     Route: 048
     Dates: start: 20150316, end: 20150510
  5. PRAVASTATIN 10 MG [Concomitant]
  6. NEW CHAPTER ONE DAILY WOMEN^S VITAMIN [Concomitant]
  7. SUPER OMEGA 3 500 MG [Concomitant]
  8. VITAMIN D-3 5,00 IU [Concomitant]
  9. CETIRIZINE HC 10 MG [Concomitant]

REACTIONS (7)
  - Fatigue [None]
  - Activities of daily living impaired [None]
  - Dizziness [None]
  - Myocardial infarction [None]
  - Nausea [None]
  - Memory impairment [None]
  - Asthenia [None]

NARRATIVE: CASE EVENT DATE: 20150605
